FAERS Safety Report 14126145 (Version 1)
Quarter: 2017Q4

REPORT INFORMATION
  Report Type: Spontaneous
  Country: HR (occurrence: HR)
  Receive Date: 20171025
  Receipt Date: 20171025
  Transmission Date: 20180321
  Serious: Yes (Other)
  Sender: FDA-Public Use
  Company Number: HR-ABBVIE-17P-216-2142987-00

PATIENT
  Age: 19 Year
  Sex: Female

DRUGS (12)
  1. RIVOTRIL [Suspect]
     Active Substance: CLONAZEPAM
     Indication: INTENTIONAL OVERDOSE
     Route: 048
     Dates: start: 20170827, end: 20170827
  2. AKINETON [Suspect]
     Active Substance: BIPERIDEN HYDROCHLORIDE
     Indication: INTENTIONAL OVERDOSE
     Route: 048
     Dates: start: 20170827, end: 20170827
  3. DEPAKINE CHRONO [Suspect]
     Active Substance: VALPROATE SODIUM
     Indication: INTENTIONAL OVERDOSE
     Route: 048
     Dates: start: 20170827, end: 20170827
  4. AKINETON [Suspect]
     Active Substance: BIPERIDEN HYDROCHLORIDE
     Indication: SUICIDE ATTEMPT
  5. HALDOL [Suspect]
     Active Substance: HALOPERIDOL
     Indication: INTENTIONAL OVERDOSE
     Route: 048
     Dates: start: 20170827, end: 20170827
  6. MIRZATEN [Suspect]
     Active Substance: MIRTAZAPINE
     Indication: INTENTIONAL OVERDOSE
     Route: 048
     Dates: start: 20170827, end: 20170827
  7. MIRZATEN [Suspect]
     Active Substance: MIRTAZAPINE
     Indication: SUICIDE ATTEMPT
  8. LOQUEN [Suspect]
     Active Substance: QUETIAPINE FUMARATE
     Indication: INTENTIONAL OVERDOSE
     Route: 048
     Dates: start: 20170827, end: 20170827
  9. LOQUEN [Suspect]
     Active Substance: QUETIAPINE FUMARATE
     Indication: SUICIDE ATTEMPT
  10. DEPAKINE CHRONO [Suspect]
     Active Substance: VALPROATE SODIUM
     Indication: SUICIDE ATTEMPT
  11. RIVOTRIL [Suspect]
     Active Substance: CLONAZEPAM
     Indication: SUICIDE ATTEMPT
  12. HALDOL [Suspect]
     Active Substance: HALOPERIDOL
     Indication: SUICIDE ATTEMPT

REACTIONS (4)
  - Somnolence [Unknown]
  - Seizure [Unknown]
  - Suicide attempt [Unknown]
  - Intentional overdose [Unknown]

NARRATIVE: CASE EVENT DATE: 20170827
